FAERS Safety Report 11149280 (Version 1)
Quarter: 2015Q2

REPORT INFORMATION
  Report Type: Spontaneous
  Country: US (occurrence: US)
  Receive Date: 20150529
  Receipt Date: 20150529
  Transmission Date: 20150821
  Serious: Yes (Hospitalization)
  Sender: FDA-Public Use
  Company Number: US-AMGEN-USASP2015051206

PATIENT
  Age: 72 Year
  Sex: Female

DRUGS (2)
  1. ALENDRONATE [Concomitant]
     Active Substance: ALENDRONATE SODIUM
     Dosage: UNK
     Dates: start: 201504
  2. PROLIA [Suspect]
     Active Substance: DENOSUMAB
     Indication: PRODUCT USED FOR UNKNOWN INDICATION
     Dosage: UNK
     Route: 065
     Dates: start: 2012, end: 201406

REACTIONS (3)
  - Pelvic fracture [Unknown]
  - Fall [Unknown]
  - Balance disorder [Unknown]

NARRATIVE: CASE EVENT DATE: 201410
